FAERS Safety Report 6400390-4 (Version None)
Quarter: 2009Q4

REPORT INFORMATION
  Report Type: 
  Country: None (occurrence: None)
  Receive Date: 20091014
  Receipt Date: 20091002
  Transmission Date: 20100525
  Serious: Yes (Hospitalization)
  Sender: FDA-Public Use
  Company Number: GR-ELI_LILLY_AND_COMPANY-GR200910000632

PATIENT
  Sex: Male
  Weight: 84 kg

DRUGS (10)
  1. PEMETREXED [Suspect]
     Indication: NON-SMALL CELL LUNG CANCER
     Dosage: 500 MG/M2, ON D1 EVERY 21 DAYS
     Route: 042
     Dates: start: 20090923
  2. CETUXIMAB [Suspect]
     Indication: NON-SMALL CELL LUNG CANCER
     Dosage: 400 MG/M2, ON D1 CYCLE 1
     Route: 042
     Dates: start: 20090923, end: 20090923
  3. CISPLATIN [Suspect]
     Indication: NON-SMALL CELL LUNG CANCER
     Dosage: 75 MG/M2, ON D1 EVERY 21 DAYS
     Route: 042
     Dates: start: 20090923
  4. FOLIC ACID [Concomitant]
     Indication: PROPHYLAXIS
     Dates: start: 20090917, end: 20090927
  5. VIT B12 [Concomitant]
     Indication: PROPHYLAXIS
     Dates: start: 20090917
  6. DEXAMETHASONE 0.5MG TAB [Concomitant]
     Indication: PROPHYLAXIS
     Dates: start: 20090922, end: 20090924
  7. ANTIHISTAMINES [Concomitant]
     Indication: PROPHYLAXIS
     Dates: start: 20090923, end: 20090923
  8. ACCURETIC [Concomitant]
     Indication: HYPERTENSION
     Dates: start: 19990101
  9. LOBIVON [Concomitant]
     Indication: HYPERTENSION
     Dates: start: 19990101
  10. PRADIF [Concomitant]
     Indication: BENIGN PROSTATIC HYPERPLASIA
     Dates: start: 20070101

REACTIONS (1)
  - CEREBRAL ISCHAEMIA [None]
